FAERS Safety Report 10636707 (Version 4)
Quarter: 2018Q3

REPORT INFORMATION
  Report Type: Report from Study
  Country: CA (occurrence: CA)
  Receive Date: 20141208
  Receipt Date: 20180801
  Transmission Date: 20181010
  Serious: Yes (Other)
  Sender: FDA-Public Use
  Company Number: CA-AMGEN-CANSL2014094415

PATIENT
  Age: 66 Year
  Sex: Female

DRUGS (17)
  1. ASAPHEN [Concomitant]
     Active Substance: ASPIRIN
     Dosage: 80MG 1 TABLET DAILY
  2. ATASOL [Concomitant]
     Active Substance: ACETAMINOPHEN
     Dosage: UNK UNK, AS NECESSARY
  3. ORENCIA [Suspect]
     Active Substance: ABATACEPT
     Indication: PRODUCT USED FOR UNKNOWN INDICATION
     Dosage: UNK
     Route: 065
  4. ONGLYZA [Concomitant]
     Active Substance: SAXAGLIPTIN HYDROCHLORIDE
     Dosage: 2.5 MG,ONE TABLET DAILY
  5. LISINOPRIL. [Concomitant]
     Active Substance: LISINOPRIL
     Dosage: 20 MG, QD
  6. LIPITOR [Suspect]
     Active Substance: ATORVASTATIN CALCIUM
     Indication: BLOOD CHOLESTEROL INCREASED
     Dosage: 10 MG, ONE TABLET DAILY
     Route: 065
     Dates: start: 20141124, end: 201411
  7. HUMIRA [Suspect]
     Active Substance: ADALIMUMAB
     Indication: RHEUMATOID ARTHRITIS
     Dosage: UNK
     Route: 065
     Dates: end: 20180720
  8. ZYLOPRIM [Concomitant]
     Active Substance: ALLOPURINOL
     Dosage: 300 MG 0.5 TABLET DAILY
  9. ARAVA [Concomitant]
     Active Substance: LEFLUNOMIDE
     Dosage: 10 MG, ONE TABLET DAILY
     Dates: end: 201411
  10. ACETAMINOPHEN. [Concomitant]
     Active Substance: ACETAMINOPHEN
     Dosage: UNK
  11. ACETAMINOPHEN. [Concomitant]
     Active Substance: ACETAMINOPHEN
     Dosage: UNK
  12. LEFLUNOMIDE. [Suspect]
     Active Substance: LEFLUNOMIDE
     Indication: PRODUCT USED FOR UNKNOWN INDICATION
     Dosage: 10?20MG, QD
     Route: 065
     Dates: start: 20140201, end: 20141101
  13. ACETAMINOPHEN. [Concomitant]
     Active Substance: ACETAMINOPHEN
     Dosage: UNK
  14. ENBREL [Suspect]
     Active Substance: ETANERCEPT
     Indication: RHEUMATOID ARTHRITIS
     Dosage: 50 MG, QWK
     Route: 065
     Dates: start: 20140724
  15. METFORMIN [Concomitant]
     Active Substance: METFORMIN HYDROCHLORIDE
     Dosage: 500MG 1.5 TABLET TWICE DAILY
  16. APO FUROSEMIDE [Concomitant]
     Active Substance: FUROSEMIDE
     Dosage: 20MG ONE TABLET DAILY
  17. TYLENOL EXTRA STRENGTH [Concomitant]
     Active Substance: ACETAMINOPHEN
     Dosage: 2 TABLETS IN THE MORNING AND SOMETIMES AT BEDTIME

REACTIONS (5)
  - Injection site pain [Unknown]
  - Blood cholesterol increased [Unknown]
  - Drug-induced liver injury [Unknown]
  - Peripheral swelling [Unknown]
  - Drug ineffective [Unknown]

NARRATIVE: CASE EVENT DATE: 2014
